FAERS Safety Report 5319415-2 (Version None)
Quarter: 2007Q2

REPORT INFORMATION
  Report Type: 
  Country: None (occurrence: None)
  Receive Date: 20070508
  Receipt Date: 20070426
  Transmission Date: 20071010
  Serious: Yes (Death)
  Sender: FDA-Public Use
  Company Number: FR-PFIZER INC-2007025972

PATIENT
  Age: 71 Year
  Sex: Female

DRUGS (19)
  1. NEURONTIN [Suspect]
     Indication: NEUROPATHY PERIPHERAL
     Route: 048
  2. NEXIUM [Suspect]
     Route: 048
     Dates: start: 20061007, end: 20061011
  3. MINISINTROM [Suspect]
     Route: 048
  4. LEVOTHYROXINE SODIUM [Suspect]
     Dosage: DAILY DOSE:125MCG
     Route: 048
  5. INIPOMP [Suspect]
     Route: 048
  6. OFLOXACIN [Concomitant]
     Indication: SEPSIS
     Route: 048
  7. ARANESP [Concomitant]
     Indication: ANAEMIA
     Route: 058
  8. FUROSEMIDE [Concomitant]
     Indication: CARDIAC FAILURE
     Route: 048
  9. HELM COTRIMOXAZOLE [Concomitant]
  10. SIMVASTATIN [Concomitant]
  11. LOSARTAN POSTASSIUM [Concomitant]
  12. VALACYCLOVIR HCL [Concomitant]
  13. LYNESTRENOL [Concomitant]
  14. ALUMINUM HYDROXIDE GEL [Concomitant]
  15. CEFOTAXIME [Concomitant]
     Dates: start: 20061001, end: 20061004
  16. AMIKACIN [Concomitant]
     Dates: start: 20061002, end: 20061004
  17. GENTAMICIN [Concomitant]
     Dates: start: 20061002, end: 20061004
  18. DARBEPOETIN ALFA [Concomitant]
  19. OFLOXACIN [Concomitant]

REACTIONS (5)
  - ECZEMA [None]
  - EOSINOPHILIA [None]
  - FACE OEDEMA [None]
  - RENAL FAILURE ACUTE [None]
  - TOXIC EPIDERMAL NECROLYSIS [None]
